FAERS Safety Report 6258694-4 (Version None)
Quarter: 2009Q3

REPORT INFORMATION
  Report Type: 
  Country: None (occurrence: None)
  Receive Date: 20090707
  Receipt Date: 20090622
  Transmission Date: 20100115
  Serious: Yes (Hospitalization)
  Sender: FDA-Public Use
  Company Number: A0781098A

PATIENT
  Age: 63 Year
  Sex: Female

DRUGS (14)
  1. AVANDIA [Suspect]
     Indication: TYPE 2 DIABETES MELLITUS
     Dosage: 4MG TWICE PER DAY
     Route: 048
     Dates: start: 19990101, end: 20070501
  2. AVANDAMET [Suspect]
     Indication: DIABETES MELLITUS
     Route: 065
  3. AVANDARYL [Suspect]
     Indication: DIABETES MELLITUS
     Route: 065
  4. HUMALOG [Concomitant]
  5. LANTUS [Concomitant]
  6. INSULIN [Concomitant]
  7. ZOCOR [Concomitant]
  8. ISOSORBIDE [Concomitant]
  9. PLAVIX [Concomitant]
  10. METOPROLOL [Concomitant]
  11. PRAVACHOL [Concomitant]
  12. ASPIRIN [Concomitant]
  13. DIOVAN [Concomitant]
  14. HYDROCHLOROTHIAZIDE [Concomitant]

REACTIONS (2)
  - MYOCARDIAL INFARCTION [None]
  - MYOCARDIAL ISCHAEMIA [None]
